FAERS Safety Report 11680795 (Version 2)
Quarter: 2015Q4

REPORT INFORMATION
  Report Type: Spontaneous
  Country: US (occurrence: US)
  Receive Date: 20151027
  Receipt Date: 20151104
  Transmission Date: 20160304
  Serious: No
  Sender: FDA-Public Use
  Company Number: US-ELI_LILLY_AND_COMPANY-US200912002126

PATIENT
  Age: 46 Year
  Sex: Female

DRUGS (3)
  1. FORTEO [Suspect]
     Active Substance: TERIPARATIDE
     Indication: OSTEOPOROSIS
     Dosage: 20 UG, DAILY (1/D)
  2. FORTEO [Suspect]
     Active Substance: TERIPARATIDE
     Dosage: 20 UG, QD
  3. FORTEO [Suspect]
     Active Substance: TERIPARATIDE
     Dosage: 20 UG, QD

REACTIONS (11)
  - Menstrual disorder [Unknown]
  - Pain in extremity [Unknown]
  - Neck pain [Unknown]
  - Incorrect product storage [Unknown]
  - Drug dose omission [Unknown]
  - Fatigue [Unknown]
  - Malaise [Unknown]
  - Musculoskeletal pain [Unknown]
  - Injection site bruising [Unknown]
  - Musculoskeletal disorder [Unknown]
  - Discomfort [Unknown]

NARRATIVE: CASE EVENT DATE: 200912
